FAERS Safety Report 23123151 (Version 2)
Quarter: 2024Q4

REPORT INFORMATION
  Report Type: Spontaneous
  Country: US (occurrence: US)
  Receive Date: 20231030
  Receipt Date: 20241113
  Transmission Date: 20250114
  Serious: Yes (Other)
  Sender: AMGEN
  Company Number: US-AMGEN-USASP2023190450

PATIENT

DRUGS (2)
  1. IVABRADINE [Suspect]
     Active Substance: IVABRADINE
     Indication: Junctional ectopic tachycardia
     Dosage: UNK
     Route: 065
  2. IVABRADINE [Suspect]
     Active Substance: IVABRADINE
     Indication: Off label use

REACTIONS (4)
  - Sinus bradycardia [Unknown]
  - Supraventricular extrasystoles [Unknown]
  - Drug ineffective [Unknown]
  - Off label use [Unknown]
